FAERS Safety Report 13391356 (Version 1)
Quarter: 2017Q1

REPORT INFORMATION
  Report Type: Spontaneous
  Country: JP (occurrence: JP)
  Receive Date: 20170331
  Receipt Date: 20170331
  Transmission Date: 20170429
  Serious: Yes (Death, Other)
  Sender: FDA-Public Use
  Company Number: JP-009507513-1703JPN000611J

PATIENT
  Age: 75 Year
  Sex: Female

DRUGS (4)
  1. E KEPPRA [Concomitant]
     Active Substance: LEVETIRACETAM
     Dosage: UNK
     Route: 065
  2. TEMODAL [Suspect]
     Active Substance: TEMOZOLOMIDE
     Indication: GLIOMA
     Dosage: UNK
     Route: 048
     Dates: start: 2015, end: 2017
  3. TEMODAL [Suspect]
     Active Substance: TEMOZOLOMIDE
     Indication: GLIOMA
     Dosage: 100 MG, UNK
     Route: 041
     Dates: start: 2017, end: 201703
  4. NASEA [Concomitant]
     Active Substance: RAMOSETRON HYDROCHLORIDE
     Dosage: UNK
     Route: 041

REACTIONS (4)
  - Dysphagia [Unknown]
  - Weight decreased [Unknown]
  - Disease progression [Fatal]
  - Erythema multiforme [Unknown]

NARRATIVE: CASE EVENT DATE: 201703
